FAERS Safety Report 6857936-1 (Version None)
Quarter: 2010Q3

REPORT INFORMATION
  Report Type: 
  Country: None (occurrence: None)
  Receive Date: 20100714
  Receipt Date: 20100705
  Transmission Date: 20110219
  Serious: Yes (Other)
  Sender: FDA-Public Use
  Company Number: 2010SP037468

PATIENT
  Age: 55 Year
  Sex: Female
  Weight: 50 kg

DRUGS (2)
  1. CROMOLEVEL (BETAMETHASONE SODIUM PHOSPHATE / ACETATE) (BETAMETHASONE S [Suspect]
     Indication: MUSCLE CONTRACTIONS INVOLUNTARY
     Dates: start: 20100622
  2. DOLOPRIX [Concomitant]

REACTIONS (6)
  - ACNE [None]
  - ERYTHEMA [None]
  - ILEUS PARALYTIC [None]
  - MUSCLE ATROPHY [None]
  - MUSCLE SPASMS [None]
  - POLYDIPSIA [None]
